FAERS Safety Report 4639152-7 (Version None)
Quarter: 2005Q2

REPORT INFORMATION
  Report Type: 
  Country: None (occurrence: None)
  Receive Date: 20050418
  Receipt Date: 20050407
  Transmission Date: 20051028
  Serious: Yes (Hospitalization, Disabling, Other)
  Sender: FDA-Public Use
  Company Number: 2005-03-0079

PATIENT
  Age: 56 Year
  Sex: Female
  Weight: 40 kg

DRUGS (5)
  1. INTRON A [Suspect]
     Indication: HEPATITIS C
     Dosage: SEE IMAGE
     Route: 030
     Dates: start: 20030418, end: 20041222
  2. INTRON A [Suspect]
     Indication: HEPATITIS C
     Dosage: SEE IMAGE
     Route: 030
     Dates: start: 20030418, end: 20050126
  3. ETODOLAC [Concomitant]
  4. REBAMIPIDE TABLETS [Concomitant]
  5. MYONAL TABLETS [Concomitant]

REACTIONS (10)
  - APHASIA [None]
  - BACK PAIN [None]
  - BEDRIDDEN [None]
  - CEREBRAL INFARCTION [None]
  - CORONARY ARTERY EMBOLISM [None]
  - DEPRESSED LEVEL OF CONSCIOUSNESS [None]
  - EYE MOVEMENT DISORDER [None]
  - FEEDING DISORDER [None]
  - HEMIPLEGIA [None]
  - THROMBOSIS [None]
